FAERS Safety Report 6860317-8 (Version None)
Quarter: 2010Q3

REPORT INFORMATION
  Report Type: 
  Country: None (occurrence: None)
  Receive Date: 20100719
  Receipt Date: 20100719
  Transmission Date: 20110219
  Serious: Yes (Other)
  Sender: FDA-Public Use
  Company Number: None

PATIENT
  Age: 36 Year
  Sex: Female
  Weight: 50 kg

DRUGS (2)
  1. PRILOSEC OTC [Suspect]
     Indication: DYSPEPSIA
     Dosage: DAILY ORAL
     Route: 048
     Dates: start: 20090901, end: 20100101
  2. NEXIUM [Suspect]
     Indication: DYSPEPSIA
     Dosage: 40MG/DAY ORAL
     Route: 048
     Dates: start: 20100101, end: 20100701

REACTIONS (5)
  - BONE PAIN [None]
  - DYSPNOEA [None]
  - EXERCISE TOLERANCE DECREASED [None]
  - PAIN IN EXTREMITY [None]
  - UNEVALUABLE EVENT [None]
